FAERS Safety Report 4824054-3 (Version None)
Quarter: 2005Q4

REPORT INFORMATION
  Report Type: 
  Country: None (occurrence: None)
  Receive Date: 20051108
  Receipt Date: 20051025
  Transmission Date: 20060501
  Serious: Yes (Hospitalization)
  Sender: FDA-Public Use
  Company Number: US_0510123002

PATIENT
  Age: 21 Year
  Sex: Male
  Weight: 109 kg

DRUGS (3)
  1. OLANZAPINE [Suspect]
     Indication: SCHIZOPHRENIA
     Dosage: 405 MG/1 DAY
     Dates: start: 20050103
  2. OLANZAPINE [Concomitant]
  3. SERTRALINE HCL [Concomitant]

REACTIONS (4)
  - DIABETES MELLITUS [None]
  - DIABETIC KETOACIDOSIS [None]
  - NAUSEA [None]
  - RESPIRATORY RATE INCREASED [None]
